FAERS Safety Report 25702070 (Version 4)
Quarter: 2025Q4

REPORT INFORMATION
  Report Type: Spontaneous
  Country: CA (occurrence: CA)
  Receive Date: 20250819
  Receipt Date: 20251013
  Transmission Date: 20260119
  Serious: Yes (Other)
  Sender: PFIZER
  Company Number: CA-PFIZER INC-202500158600

PATIENT
  Age: 44 Year
  Sex: Male
  Weight: 95 kg

DRUGS (3)
  1. IXIFI [Suspect]
     Active Substance: INFLIXIMAB-QBTX
     Indication: Colitis ulcerative
     Dosage: 500 MG, EVERY 8 WEEKS
     Route: 042
     Dates: start: 20250612
  2. IXIFI [Suspect]
     Active Substance: INFLIXIMAB-QBTX
     Dosage: 500 MG, 7 WEEKS 6 DAYS (EVERY 8 WEEKS)
     Route: 042
     Dates: start: 20250806
  3. IXIFI [Suspect]
     Active Substance: INFLIXIMAB-QBTX
     Dosage: 500 MG, EVERY 6 WEEKS
     Route: 042
     Dates: start: 20250917

REACTIONS (5)
  - Gastrointestinal polyp haemorrhage [Unknown]
  - Therapeutic response shortened [Unknown]
  - Anorectal polyp [Unknown]
  - Large intestine polyp [Unknown]
  - Off label use [Unknown]

NARRATIVE: CASE EVENT DATE: 20250101
